FAERS Safety Report 5552373-4 (Version None)
Quarter: 2007Q4

REPORT INFORMATION
  Report Type: 
  Country: None (occurrence: None)
  Receive Date: 20071212
  Receipt Date: 20071210
  Transmission Date: 20080405
  Serious: Yes (Hospitalization)
  Sender: FDA-Public Use
  Company Number: FR-MERCK-0712FRA00028

PATIENT
  Age: 54 Year
  Sex: Female

DRUGS (11)
  1. ZOCOR [Suspect]
     Indication: HYPERCHOLESTEROLAEMIA
     Route: 048
     Dates: end: 20071022
  2. DOMPERIDONE [Suspect]
     Indication: GASTRITIS
     Route: 048
     Dates: start: 20071006, end: 20071022
  3. OMEPRAZOLE [Suspect]
     Indication: GASTRITIS
     Route: 048
     Dates: end: 20071022
  4. ALUMINUM HYDROXIDE AND MAGNESIUM CARBONATE [Suspect]
     Indication: GASTRITIS
     Route: 048
     Dates: start: 20071006, end: 20071022
  5. TETRAZEPAM [Suspect]
     Indication: NECK PAIN
     Route: 048
     Dates: start: 20071006, end: 20071022
  6. BROMAZEPAM [Suspect]
     Indication: ANXIETY
     Route: 048
     Dates: end: 20071022
  7. PHLOROGLUCINOL [Suspect]
     Indication: GASTRITIS
     Route: 048
     Dates: end: 20071022
  8. ASCORBIC ACID AND BUTCHERS BROOM AND HESPERIDIN METHYL CHALCONE AND TR [Suspect]
     Route: 048
     Dates: end: 20071022
  9. CELIPROLOL HYDROCHLORIDE [Concomitant]
     Indication: HYPERTENSION
     Route: 048
  10. NICARDIPINE HYDROCHLORIDE [Concomitant]
     Indication: HYPERTENSION
     Route: 048
  11. ACETAMINOPHEN [Concomitant]
     Route: 048

REACTIONS (3)
  - GINGIVAL BLEEDING [None]
  - PURPURA [None]
  - THROMBOCYTOPENIA [None]
